FAERS Safety Report 5951841-0 (Version None)
Quarter: 2008Q4

REPORT INFORMATION
  Report Type: 
  Country: None (occurrence: None)
  Receive Date: 20081113
  Receipt Date: 20081107
  Transmission Date: 20090506
  Serious: Yes (Hospitalization, Other)
  Sender: FDA-Public Use
  Company Number: B0546115A

PATIENT
  Age: 73 Year
  Sex: Female

DRUGS (1)
  1. ARIXTRA [Suspect]
     Route: 065

REACTIONS (5)
  - EPISTAXIS [None]
  - HAEMORRHAGE [None]
  - HAEMOTHORAX [None]
  - PETECHIAE [None]
  - PLEURAL EFFUSION [None]
